FAERS Safety Report 4506076-5 (Version None)
Quarter: 2004Q4

REPORT INFORMATION
  Report Type: 
  Country: None (occurrence: None)
  Receive Date: 20041025
  Receipt Date: 20040507
  Transmission Date: 20050328
  Serious: Yes (Death)
  Sender: FDA-Public Use
  Company Number: US-JNJFOC-20040501644

PATIENT
  Age: 77 Year
  Sex: Female

DRUGS (13)
  1. INFLIXIMAB (INFLIXIMAB, RECOMBINANT) LYOPHILIZED POWDER [Suspect]
     Indication: RHEUMATOID ARTHRITIS
     Dosage: INTRAVENOUS
     Route: 042
     Dates: start: 20000321
  2. IRON (IRON) [Concomitant]
  3. PRILOSEC [Concomitant]
  4. DYAZIDE [Concomitant]
  5. CELEXA [Concomitant]
  6. ALLEGRA [Concomitant]
  7. FOLIC ACID [Concomitant]
  8. PREMARIN [Concomitant]
  9. SYNTHROID [Concomitant]
  10. CLORCON (ALL OTHER THERAPEUTIC PRODUCTS) [Concomitant]
  11. NEURONTIN [Concomitant]
  12. PERCODAN (PERCODAN) [Concomitant]
  13. CARISOPRODOL [Concomitant]

REACTIONS (1)
  - PNEUMONIA [None]
